FAERS Safety Report 9111635 (Version 1)
Quarter: 2013Q1

REPORT INFORMATION
  Report Type: Spontaneous
  Country: US (occurrence: US)
  Receive Date: 20130219
  Receipt Date: 20130219
  Transmission Date: 20140127
  Serious: No
  Sender: FDA-Public Use
  Company Number: US-BRISTOL-MYERS SQUIBB COMPANY-16572752

PATIENT
  Age: 81 Year
  Sex: Female

DRUGS (4)
  1. ORENCIA [Suspect]
     Route: 058
  2. METHOTREXATE [Concomitant]
  3. TYLENOL [Concomitant]
  4. PREDNISONE [Concomitant]

REACTIONS (1)
  - Drug ineffective [Unknown]
